FAERS Safety Report 6836408-4 (Version None)
Quarter: 2010Q3

REPORT INFORMATION
  Report Type: 
  Country: None (occurrence: None)
  Receive Date: 20100713
  Receipt Date: 20100703
  Transmission Date: 20110219
  Serious: Yes (Other)
  Sender: FDA-Public Use
  Company Number: JP-PFIZER INC-2010083142

PATIENT
  Sex: Female

DRUGS (2)
  1. ZITHROMAC SR [Suspect]
     Indication: BRONCHITIS
     Dosage: 2G/DAY
     Route: 048
     Dates: start: 20100501
  2. SALMETEROL XINAFOATE [Concomitant]
     Indication: ASTHMA
     Dosage: UNK

REACTIONS (1)
  - CANDIDA TEST POSITIVE [None]
